FAERS Safety Report 7542781-4 (Version None)
Quarter: 2011Q2

REPORT INFORMATION
  Report Type: 
  Country: None (occurrence: None)
  Receive Date: 20110613
  Receipt Date: 20110606
  Transmission Date: 20111010
  Serious: Yes (Other)
  Sender: FDA-Public Use
  Company Number: B0725800A

PATIENT
  Age: 32 Year
  Sex: Female

DRUGS (1)
  1. DUAC [Suspect]
     Route: 061
     Dates: start: 20100501, end: 20100601

REACTIONS (3)
  - ANGIOEDEMA [None]
  - ERYTHEMA [None]
  - EYE SWELLING [None]
